FAERS Safety Report 9011897 (Version 2)
Quarter: 2013Q3

REPORT INFORMATION
  Report Type: Spontaneous
  Country: GB (occurrence: None)
  Receive Date: 20121228
  Receipt Date: 20130930
  Transmission Date: 20140515
  Serious: Yes (Other)
  Sender: FDA-Public Use
  Company Number: GER/UKI/12/0027173

PATIENT
  Age: 47 Year
  Sex: Female
  Weight: 93.43 kg

DRUGS (3)
  1. CETIRIZINE [Suspect]
     Indication: HYPERSENSITIVITY
     Route: 048
     Dates: start: 2011, end: 20121202
  2. ANTIBIOTICS NOS (ANTIBIOTICS) [Concomitant]
  3. INHALER (SALBUTAMOL SULFATE) [Concomitant]

REACTIONS (6)
  - Pruritus generalised [None]
  - Withdrawal syndrome [None]
  - Weight increased [None]
  - Urinary tract infection [None]
  - Off label use [None]
  - Drug ineffective [None]
